FAERS Safety Report 4284158-3 (Version None)
Quarter: 2004Q1

REPORT INFORMATION
  Report Type: 
  Country: None (occurrence: None)
  Receive Date: 20040203
  Receipt Date: 20040122
  Transmission Date: 20041129
  Serious: Yes (Hospitalization, Other)
  Sender: FDA-Public Use
  Company Number: FR-GLAXOSMITHKLINE-B0320631A

PATIENT
  Age: 43 Year
  Sex: Male
  Weight: 64 kg

DRUGS (3)
  1. COMBIVIR [Suspect]
     Indication: HIV INFECTION
     Route: 048
     Dates: start: 20010705
  2. LIPANTHYL [Suspect]
     Dosage: 200MG PER DAY
     Route: 048
  3. SUSTIVA [Suspect]
     Indication: HIV INFECTION
     Route: 048
     Dates: start: 20010705

REACTIONS (1)
  - CALCULUS URETERIC [None]
